FAERS Safety Report 25078044 (Version 4)
Quarter: 2025Q1

REPORT INFORMATION
  Report Type: Report from Study
  Country: IL (occurrence: IL)
  Receive Date: 20250314
  Receipt Date: 20250324
  Transmission Date: 20250409
  Serious: Yes (Death, Life-Threatening, Hospitalization)
  Sender: ABBVIE
  Company Number: IL-ABBVIE-6136445

PATIENT
  Age: 80 Year
  Sex: Male

DRUGS (2)
  1. CARBIDOPA\LEVODOPA [Suspect]
     Active Substance: CARBIDOPA\LEVODOPA
     Indication: Parkinson^s disease
     Route: 050
  2. CARBIDOPA\LEVODOPA [Suspect]
     Active Substance: CARBIDOPA\LEVODOPA
     Route: 050
     Dates: start: 20190623

REACTIONS (24)
  - Aspiration [Fatal]
  - Dyskinesia [Unknown]
  - Decreased appetite [Unknown]
  - Nervousness [Unknown]
  - Asthenia [Unknown]
  - Skin bacterial infection [Unknown]
  - Confusional state [Unknown]
  - Constipation [Unknown]
  - Vomiting [Unknown]
  - Hallucination, visual [Unknown]
  - On and off phenomenon [Unknown]
  - Stoma site discharge [Unknown]
  - Cough [Not Recovered/Not Resolved]
  - Gastrointestinal motility disorder [Unknown]
  - Decubitus ulcer [Recovering/Resolving]
  - Stoma site haemorrhage [Unknown]
  - Pneumonia [Not Recovered/Not Resolved]
  - Stoma site pain [Unknown]
  - Loss of consciousness [Unknown]
  - Hypoproteinaemia [Unknown]
  - Dysphagia [Not Recovered/Not Resolved]
  - Urinary tract infection [Unknown]
  - Sepsis [Fatal]
  - General physical health deterioration [Unknown]

NARRATIVE: CASE EVENT DATE: 20240101
